FAERS Safety Report 13323414 (Version 2)
Quarter: 2017Q1

REPORT INFORMATION
  Report Type: Report from Study
  Country: KR (occurrence: KR)
  Receive Date: 20170310
  Receipt Date: 20170320
  Transmission Date: 20170428
  Serious: Yes (Death, Hospitalization)
  Sender: FDA-Public Use
  Company Number: KR-EISAI MEDICAL RESEARCH-EC-2016-020991

PATIENT
  Age: 69 Year
  Sex: Female
  Weight: 60.7 kg

DRUGS (10)
  1. TRAMADOL, COMBINATIONS [Concomitant]
  2. LACTULOSE. [Concomitant]
     Active Substance: LACTULOSE
  3. MEGESTROL [Concomitant]
     Active Substance: MEGESTROL
  4. FUROSEMIDE. [Concomitant]
     Active Substance: FUROSEMIDE
  5. HALAVEN [Suspect]
     Active Substance: ERIBULIN MESYLATE
     Indication: BREAST CANCER
     Route: 041
     Dates: start: 20160729, end: 20160729
  6. ATORVASTATIN [Concomitant]
     Active Substance: ATORVASTATIN
  7. PERIDOL [Concomitant]
     Active Substance: HALOPERIDOL
  8. HALAVEN [Suspect]
     Active Substance: ERIBULIN MESYLATE
     Route: 041
     Dates: start: 20160825, end: 20160922
  9. AMLODIPINE [Concomitant]
     Active Substance: AMLODIPINE BESYLATE
  10. OLANZAPINE. [Concomitant]
     Active Substance: OLANZAPINE

REACTIONS (2)
  - Pulmonary oedema [Not Recovered/Not Resolved]
  - Disease progression [Fatal]

NARRATIVE: CASE EVENT DATE: 20160917
